FAERS Safety Report 7736807-2 (Version None)
Quarter: 2011Q3

REPORT INFORMATION
  Report Type: 
  Country: None (occurrence: None)
  Receive Date: 20110908
  Receipt Date: 20110908
  Transmission Date: 20111222
  Serious: Yes (Other)
  Sender: FDA-Public Use
  Company Number: None

PATIENT
  Age: 61 Year
  Sex: Male
  Weight: 77.11 kg

DRUGS (1)
  1. RENVELA [Suspect]
     Indication: RENAL FAILURE CHRONIC
     Dosage: 2400MG
     Route: 048
     Dates: start: 20110725, end: 20110815

REACTIONS (4)
  - ERYTHEMA [None]
  - ARTHRALGIA [None]
  - JOINT SWELLING [None]
  - PRODUCT LABEL ISSUE [None]
